FAERS Safety Report 8904290 (Version 1)
Quarter: 2012Q4

REPORT INFORMATION
  Report Type: 
  Country: GB (occurrence: GB)
  Receive Date: 20121112
  Receipt Date: 20121112
  Transmission Date: 20130627
  Serious: Yes (Other)
  Sender: FDA-Public Use
  Company Number: GB-GLAXOSMITHKLINE-B0705800A

PATIENT
  Sex: Female

DRUGS (7)
  1. SEREVENT DISKUS [Suspect]
     Indication: ASTHMA
     Dosage: 1PUFF Four times per day
     Route: 055
  2. UNSPECIFIED INGREDIENT [Suspect]
     Indication: ASTHMA
     Route: 055
  3. BECLOMETHASONE [Concomitant]
  4. CLENIL [Concomitant]
  5. IPRATROPIUM [Concomitant]
  6. SALBUTAMOL [Concomitant]
  7. PREDNISONE [Concomitant]
     Indication: LOWER RESPIRATORY TRACT INFECTION

REACTIONS (3)
  - Asthma [Not Recovered/Not Resolved]
  - Drug effect decreased [Not Recovered/Not Resolved]
  - Product quality issue [Unknown]
